FAERS Safety Report 10720317 (Version 1)
Quarter: 2015Q1

REPORT INFORMATION
  Report Type: Spontaneous
  Country: US (occurrence: US)
  Receive Date: 20150119
  Receipt Date: 20150119
  Transmission Date: 20150721
  Serious: No
  Sender: FDA-Public Use
  Company Number: US-ASTRAZENECA-2014SE97339

PATIENT

DRUGS (1)
  1. NEXIUM [Suspect]
     Active Substance: ESOMEPRAZOLE MAGNESIUM
     Route: 048

REACTIONS (10)
  - Rash [Unknown]
  - Dizziness [Unknown]
  - Balance disorder [Unknown]
  - Vertigo [Unknown]
  - Feeling drunk [Unknown]
  - Palpitations [Unknown]
  - Visual impairment [Unknown]
  - Diarrhoea [Unknown]
  - Bone density decreased [Unknown]
  - Feeling abnormal [Unknown]
